FAERS Safety Report 6018226-2 (Version None)
Quarter: 2008Q4

REPORT INFORMATION
  Report Type: 
  Country: None (occurrence: None)
  Receive Date: 20081223
  Receipt Date: 20081218
  Transmission Date: 20090506
  Serious: Yes (Hospitalization)
  Sender: FDA-Public Use
  Company Number: US-ELI_LILLY_AND_COMPANY-US200812004771

PATIENT
  Sex: Male
  Weight: 136.5 kg

DRUGS (23)
  1. BYETTA [Suspect]
     Indication: TYPE 2 DIABETES MELLITUS
     Dosage: 5 UG, 2/D
     Route: 058
     Dates: start: 20050101, end: 20050101
  2. BYETTA [Suspect]
     Dosage: 10 UG, 2/D
     Route: 058
     Dates: start: 20050101
  3. NOVOLOG [Concomitant]
     Dosage: 20 U, 3/D
  4. LANTUS [Concomitant]
     Dosage: 55 U, EACH EVENING
  5. NEVANAC [Concomitant]
     Dosage: 1 GTT, 3/D
  6. REFRESH [Concomitant]
     Dosage: 1 GTT, UNKNOWN
  7. ALPHAGAN [Concomitant]
     Dosage: 1 GTT, 2/D
  8. COSOPT [Concomitant]
     Dosage: UNK, 2/D
  9. ISOPTO CARPINE [Concomitant]
     Dosage: UNK, DAILY (1/D)
  10. BUMETANIDE [Concomitant]
     Dosage: 1 MG, DAILY (1/D)
  11. CALCIUM [Concomitant]
     Dosage: UNK, 2/D
  12. ASPIRIN [Concomitant]
     Dosage: UNK, DAILY (1/D)
  13. PLAVIX [Concomitant]
     Dosage: UNK, DAILY (1/D)
  14. NIASPAN [Concomitant]
     Dosage: 500 MG, DAILY (1/D)
  15. PROPOXYPHENE HYDROCHLORIDE [Concomitant]
     Dosage: UNK, DAILY (1/D)
  16. DESONIDE [Concomitant]
     Dosage: UNK, DAILY (1/D)
  17. ASCORBIC ACID [Concomitant]
     Dosage: UNK, DAILY (1/D)
  18. AM LACTIN [Concomitant]
     Dosage: UNK, DAILY (1/D)
  19. LAMISIL [Concomitant]
     Indication: TINEA CRURIS
     Dosage: UNK, UNKNOWN
  20. BENAZEPRIL HYDROCHLORIDE [Concomitant]
     Dosage: 10 MG, DAILY (1/D)
  21. NORVASC [Concomitant]
     Dosage: 5 MG, DAILY (1/D)
  22. SIMVASTATIN [Concomitant]
     Dosage: UNK, DAILY (1/D)
  23. COLACE [Concomitant]
     Dosage: UNK, DAILY (1/D)

REACTIONS (1)
  - LOCALISED INFECTION [None]
